FAERS Safety Report 5585545-3 (Version None)
Quarter: 2008Q1

REPORT INFORMATION
  Report Type: 
  Country: None (occurrence: None)
  Receive Date: 20080109
  Receipt Date: 20080103
  Transmission Date: 20080703
  Serious: Yes (Other)
  Sender: FDA-Public Use
  Company Number: B0360502A

PATIENT
  Age: 50 Year
  Sex: Female

DRUGS (6)
  1. PAROXETINE HYDROCHLORIDE [Suspect]
     Route: 065
     Dates: start: 19941030
  2. PROTHIADEN [Concomitant]
     Dates: start: 19900705
  3. PROZAC [Concomitant]
     Dates: start: 19991022
  4. TRAZODONE HCL [Concomitant]
     Dates: start: 20030707
  5. GAMANIL [Concomitant]
     Dates: start: 20030728
  6. CIPRALEX [Concomitant]
     Dates: start: 20060707

REACTIONS (21)
  - ABNORMAL BEHAVIOUR [None]
  - AGGRESSION [None]
  - ANOREXIA [None]
  - ANXIETY [None]
  - CRYING [None]
  - EMOTIONAL DISORDER [None]
  - HEADACHE [None]
  - HYPERHIDROSIS [None]
  - INSOMNIA [None]
  - MOOD ALTERED [None]
  - MOOD SWINGS [None]
  - MORBID THOUGHTS [None]
  - NAUSEA [None]
  - NIGHTMARE [None]
  - PARAESTHESIA [None]
  - PERSONALITY CHANGE [None]
  - POOR QUALITY SLEEP [None]
  - SUICIDAL IDEATION [None]
  - TREMOR [None]
  - WEIGHT INCREASED [None]
  - WITHDRAWAL SYNDROME [None]
